FAERS Safety Report 4713672-9 (Version None)
Quarter: 2005Q3

REPORT INFORMATION
  Report Type: 
  Country: None (occurrence: None)
  Receive Date: 20050712
  Receipt Date: 20050628
  Transmission Date: 20060218
  Serious: Yes (Life-Threatening)
  Sender: FDA-Public Use
  Company Number: TUK2005A00045

PATIENT
  Age: 35 Year

DRUGS (7)
  1. ACTOS [Suspect]
     Indication: DIABETES MELLITUS
     Dosage: 15 MG, ORAL
     Route: 048
     Dates: start: 20050516, end: 20050606
  2. METFORMIN HCL [Concomitant]
  3. SIMVASTATIN [Concomitant]
  4. LANSOPRAZOLE [Concomitant]
  5. OXYTETRACYCLINE [Concomitant]
  6. GLICIAZIDE (GLICLAZIDE) [Concomitant]
  7. ROSIGLITAZONE (ROSIGLITAZONE) [Concomitant]

REACTIONS (2)
  - CARDIAC FAILURE CONGESTIVE [None]
  - PLEURAL EFFUSION [None]
